FAERS Safety Report 16411662 (Version 2)
Quarter: 2019Q2

REPORT INFORMATION
  Report Type: Spontaneous
  Country: None (occurrence: US)
  Receive Date: 20190610
  Receipt Date: 20190621
  Transmission Date: 20190711
  Serious: Yes (Hospitalization)
  Sender: FDA-Public Use
  Company Number: US-MEDAC PHARMA, INC.-2068033

PATIENT
  Age: 62 Year
  Sex: Female
  Weight: 102.27 kg

DRUGS (1)
  1. RASUVO [Suspect]
     Active Substance: METHOTREXATE SODIUM
     Indication: POLYMYOSITIS
     Dates: start: 20190211, end: 20190402

REACTIONS (5)
  - Sepsis [Recovered/Resolved]
  - Pneumonia acinetobacter [Recovered/Resolved]
  - Feeling abnormal [Unknown]
  - Fatigue [Unknown]
  - Product use in unapproved indication [None]

NARRATIVE: CASE EVENT DATE: 20190402
